FAERS Safety Report 5359351-9 (Version None)
Quarter: 2007Q2

REPORT INFORMATION
  Report Type: 
  Country: None (occurrence: None)
  Receive Date: 20070615
  Receipt Date: 20070607
  Transmission Date: 20071010
  Serious: Yes (Other)
  Sender: FDA-Public Use
  Company Number: US-PFIZER INC-2004063324

PATIENT
  Sex: Female

DRUGS (1)
  1. NEURONTIN [Suspect]
     Indication: NEUROPATHY
     Dosage: TEXT:UNKNOWN
     Route: 065

REACTIONS (3)
  - ANXIETY [None]
  - EMOTIONAL DISTRESS [None]
  - INJURY [None]
